FAERS Safety Report 6261779-X (Version None)
Quarter: 2009Q3

REPORT INFORMATION
  Report Type: 
  Country: None (occurrence: None)
  Receive Date: 20090709
  Receipt Date: 20090629
  Transmission Date: 20100115
  Serious: Yes (Other)
  Sender: FDA-Public Use
  Company Number: KR-ELI_LILLY_AND_COMPANY-KR200907000137

PATIENT
  Age: 36 Year
  Sex: Female

DRUGS (1)
  1. PROZAC [Suspect]
     Dosage: 20 MG, DAILY (1/D)
     Route: 048
     Dates: start: 20090101, end: 20090601

REACTIONS (4)
  - ILEUS PARALYTIC [None]
  - IMPAIRED GASTRIC EMPTYING [None]
  - URINARY TRACT INFLAMMATION [None]
  - VESICOURETERIC REFLUX [None]
